FAERS Safety Report 6577751-6 (Version None)
Quarter: 2010Q1

REPORT INFORMATION
  Report Type: 
  Country: None (occurrence: None)
  Receive Date: 20100211
  Receipt Date: 20100129
  Transmission Date: 20100710
  Serious: Yes (Hospitalization)
  Sender: FDA-Public Use
  Company Number: US-ELI_LILLY_AND_COMPANY-US201002001512

PATIENT
  Sex: Female

DRUGS (7)
  1. FORTEO [Suspect]
     Indication: OSTEOPOROSIS
     Dosage: 20 UG, DAILY (1/D)
     Dates: start: 20090909
  2. PREDNISONE                         /00044701/ [Concomitant]
     Dosage: 5 MG, UNK
  3. NABUMETONE [Concomitant]
     Dosage: 1500 MG, UNK
  4. LISINOPRIL [Concomitant]
     Dosage: 20 MG, UNK
  5. METHOTREXATE [Concomitant]
     Dosage: UNK, WEEKLY (1/W)
  6. PLAQUENIL /00072601/ [Concomitant]
  7. HUMIRA [Concomitant]
     Dosage: 40 MG, UNK

REACTIONS (3)
  - ASTHENIA [None]
  - INTERVERTEBRAL DISC DISORDER [None]
  - PAIN [None]
